FAERS Safety Report 25177932 (Version 1)
Quarter: 2025Q2

REPORT INFORMATION
  Report Type: Spontaneous
  Country: US (occurrence: US)
  Receive Date: 20250409
  Receipt Date: 20250409
  Transmission Date: 20250716
  Serious: Yes (Life-Threatening, Hospitalization)
  Sender: MYLAN
  Company Number: US-MYLANLABS-2025M1029516

PATIENT
  Age: 41 Year
  Sex: Female

DRUGS (3)
  1. LOPERAMIDE [Suspect]
     Active Substance: LOPERAMIDE
     Indication: Diarrhoea
  2. ONDANSETRON [Suspect]
     Active Substance: ONDANSETRON
     Indication: Vomiting
  3. EPINEPHRINE [Suspect]
     Active Substance: EPINEPHRINE
     Indication: Hypovolaemic shock

REACTIONS (1)
  - Drug ineffective [Unknown]
